FAERS Safety Report 6263771-8 (Version None)
Quarter: 2009Q3

REPORT INFORMATION
  Report Type: 
  Country: None (occurrence: None)
  Receive Date: 20090710
  Receipt Date: 20090706
  Transmission Date: 20100115
  Serious: Yes (Death, Other)
  Sender: FDA-Public Use
  Company Number: PHHY2009CA18513

PATIENT
  Sex: Male

DRUGS (2)
  1. EXJADE [Suspect]
     Indication: MYELODYSPLASTIC SYNDROME
     Dosage: 1500 MG, QD
     Route: 048
     Dates: start: 20080618
  2. EXJADE [Suspect]
     Indication: IRON OVERLOAD

REACTIONS (2)
  - DEATH [None]
  - WEIGHT DECREASED [None]
